FAERS Safety Report 17535451 (Version 3)
Quarter: 2020Q2

REPORT INFORMATION
  Report Type: Report from Study
  Country: US (occurrence: US)
  Receive Date: 20200313
  Receipt Date: 20200507
  Transmission Date: 20200713
  Serious: No
  Sender: FDA-Public Use
  Company Number: NVSC2020US066926

PATIENT
  Age: 30 Year
  Sex: Male

DRUGS (1)
  1. COSENTYX [Suspect]
     Active Substance: SECUKINUMAB
     Indication: PSORIASIS
     Dosage: UNK, UNKNOWN
     Route: 065

REACTIONS (10)
  - Dry skin [Unknown]
  - Abscess [Unknown]
  - Gout [Unknown]
  - Blister [Unknown]
  - Tinea pedis [Unknown]
  - Yellow skin [Unknown]
  - Limb injury [Unknown]
  - Taste disorder [Unknown]
  - Gait disturbance [Unknown]
  - Skin fissures [Unknown]
